FAERS Safety Report 9257922 (Version 1)
Quarter: 2013Q2

REPORT INFORMATION
  Report Type: Spontaneous
  Country: US (occurrence: US)
  Receive Date: 20130426
  Receipt Date: 20130426
  Transmission Date: 20140414
  Serious: No
  Sender: FDA-Public Use
  Company Number: US-GLAXOSMITHKLINE-A0996514A

PATIENT
  Age: 29 Year
  Sex: Female

DRUGS (1)
  1. ZOFRAN [Suspect]
     Indication: NAUSEA
     Route: 048

REACTIONS (3)
  - Hypertension [Unknown]
  - Bed rest [Unknown]
  - Exposure during pregnancy [Unknown]
